FAERS Safety Report 9527818 (Version 1)
Quarter: 2013Q1

REPORT INFORMATION
  Report Type: Spontaneous
  Country: US (occurrence: None)
  Receive Date: 20130314
  Receipt Date: 20130314
  Transmission Date: 20140127
  Serious: No
  Sender: FDA-Public Use
  Company Number: 1211USA008444

PATIENT
  Sex: 0

DRUGS (3)
  1. PEGINTRON (PEGINTERFERON ALFA-2B) POWDER FOR INJECTION [Suspect]
  2. RIBAVIRIN (RIBAVIRIN) CAPSULE [Suspect]
  3. VICTRELIS (BOCEPREVIR) CAPSULE [Suspect]

REACTIONS (5)
  - Confusional state [None]
  - Memory impairment [None]
  - Delirium [None]
  - Balance disorder [None]
  - Disorientation [None]
